FAERS Safety Report 7494654-3 (Version None)
Quarter: 2011Q2

REPORT INFORMATION
  Report Type: 
  Country: None (occurrence: None)
  Receive Date: 20110520
  Receipt Date: 20090216
  Transmission Date: 20111010
  Serious: Yes (Death, Other)
  Sender: FDA-Public Use
  Company Number: US-BAYER-200913083NA

PATIENT
  Age: 79 Year
  Sex: Female
  Weight: 79.5 kg

DRUGS (22)
  1. MIDAZOLAM HCL [Concomitant]
  2. DOBUTAMINE HYDROCHLORIDE [Concomitant]
  3. LEVOPHED [Concomitant]
  4. VANCOMYCIN [Concomitant]
  5. HEPARIN [Concomitant]
  6. MILRINONE [Concomitant]
  7. CRYOPRECIPITATES [Concomitant]
  8. BUMEX [Concomitant]
  9. TRASYLOL [Suspect]
     Indication: INTRA-AORTIC BALLOON PLACEMENT
  10. FENTANYL [Concomitant]
  11. INSULIN [Concomitant]
  12. CEFEPIME [Concomitant]
  13. RED BLOOD CELLS [Concomitant]
     Dosage: 2 U, UNK
     Route: 042
  14. ZINACEF [Concomitant]
  15. TRASYLOL [Suspect]
     Indication: ANEURYSM REPAIR
     Dosage: 1 ML INITIAL DOSE
     Route: 042
     Dates: start: 20040525, end: 20040525
  16. PROTAMINE SULFATE [Concomitant]
  17. PLASMA [Concomitant]
  18. TRASYLOL [Suspect]
     Indication: CORONARY ARTERY BYPASS
     Dosage: 200ML LOADING DOSE
     Route: 042
     Dates: start: 20040525, end: 20040525
  19. AZACTAM [Concomitant]
  20. AMIODARONE HCL [Concomitant]
  21. LASIX [Concomitant]
     Route: 042
  22. PRIMACOR [Concomitant]

REACTIONS (9)
  - PAIN [None]
  - ANXIETY [None]
  - FEAR [None]
  - RENAL FAILURE [None]
  - INJURY [None]
  - ANHEDONIA [None]
  - DEPRESSION [None]
  - DEATH [None]
  - UNEVALUABLE EVENT [None]
